FAERS Safety Report 22384314 (Version 6)
Quarter: 2023Q2

REPORT INFORMATION
  Report Type: Spontaneous
  Country: US (occurrence: US)
  Receive Date: 20230530
  Receipt Date: 20230619
  Transmission Date: 20230722
  Serious: No
  Sender: FDA-Public Use
  Company Number: US-002147023-NVSC2023US118917

PATIENT
  Sex: Female

DRUGS (7)
  1. ESTRADIOL [Suspect]
     Active Substance: ESTRADIOL
     Indication: Product used for unknown indication
     Dosage: UNK
     Route: 065
  2. ESTRADERM [Suspect]
     Active Substance: ESTRADIOL
     Indication: Product used for unknown indication
     Dosage: UNK, EARLY 1990^S
     Route: 065
  3. VIVELLE-DOT [Suspect]
     Active Substance: ESTRADIOL
     Indication: Product used for unknown indication
     Dosage: UNK, (0.1), BIW
     Route: 062
     Dates: end: 202303
  4. VIVELLE-DOT [Suspect]
     Active Substance: ESTRADIOL
     Dosage: UNK
     Route: 065
  5. ESTRADIOL [Suspect]
     Active Substance: ESTRADIOL
     Indication: Product used for unknown indication
     Dosage: UNK
     Route: 065
  6. CLIMARA [Suspect]
     Active Substance: ESTRADIOL
     Indication: Product used for unknown indication
     Dosage: UNK
     Route: 065
  7. LACTAT [Concomitant]
     Indication: Lactose intolerance
     Dosage: UNK
     Route: 065

REACTIONS (17)
  - Rash [Unknown]
  - Bladder irritation [Unknown]
  - Feeling abnormal [Recovering/Resolving]
  - Feeling hot [Recovered/Resolved]
  - Hyperhidrosis [Recovering/Resolving]
  - Anxiety [Recovering/Resolving]
  - Crying [Recovering/Resolving]
  - Blood oestrogen decreased [Unknown]
  - Fatigue [Recovered/Resolved]
  - Urethral disorder [Unknown]
  - Brain fog [Recovering/Resolving]
  - Abdominal discomfort [Recovering/Resolving]
  - Depression [Unknown]
  - Dizziness [Recovering/Resolving]
  - Product quality issue [Unknown]
  - Product storage error [Unknown]
  - Drug ineffective [Unknown]
